FAERS Safety Report 5092346-1 (Version None)
Quarter: 2006Q3

REPORT INFORMATION
  Report Type: 
  Country: None (occurrence: None)
  Receive Date: 20060727
  Receipt Date: 20060627
  Transmission Date: 20061208
  Serious: Yes (Other)
  Sender: FDA-Public Use
  Company Number: 2006081149

PATIENT

DRUGS (4)
  1. LYRICA [Suspect]
     Indication: DRUG USE FOR UNKNOWN INDICATION
  2. BACLOFEN [Concomitant]
  3. RELAFEN [Concomitant]
  4. HYDROCODONE (HYDROCODONE) [Concomitant]

REACTIONS (1)
  - DYSTONIA [None]
